FAERS Safety Report 8300836-0 (Version None)
Quarter: 2012Q2

REPORT INFORMATION
  Report Type: 
  Country: None (occurrence: None)
  Receive Date: 20120420
  Receipt Date: 20120416
  Transmission Date: 20120825
  Serious: Yes (Hospitalization, Other)
  Sender: FDA-Public Use
  Company Number: US-PFIZER INC-2012096052

PATIENT
  Sex: Female

DRUGS (1)
  1. CHANTIX [Suspect]
     Dosage: UNK
     Dates: start: 20070401

REACTIONS (7)
  - HOSTILITY [None]
  - ANXIETY [None]
  - MOOD SWINGS [None]
  - SUICIDAL IDEATION [None]
  - DEPRESSION [None]
  - IRRITABILITY [None]
  - ABNORMAL BEHAVIOUR [None]
